FAERS Safety Report 11693966 (Version 2)
Quarter: 2015Q4

REPORT INFORMATION
  Report Type: Spontaneous
  Country: RU (occurrence: RU)
  Receive Date: 20151103
  Receipt Date: 20151207
  Transmission Date: 20160304
  Serious: Yes (Hospitalization)
  Sender: FDA-Public Use
  Company Number: RU-BAYER-2015-431971

PATIENT
  Age: 20 Year
  Sex: Female

DRUGS (1)
  1. YAZ PLUS [Suspect]
     Active Substance: DROSPIRENONE\ETHINYL ESTRADIOL
     Dosage: UNK
     Route: 048
     Dates: end: 2015

REACTIONS (4)
  - Ovarian disorder [None]
  - Abdominal pain lower [Recovered/Resolved]
  - Abnormal withdrawal bleeding [Recovered/Resolved]
  - Menorrhagia [Recovered/Resolved]
